FAERS Safety Report 10651001 (Version 2)
Quarter: 2015Q1

REPORT INFORMATION
  Report Type: Report from Study
  Country: IT (occurrence: IT)
  Receive Date: 20141215
  Receipt Date: 20150115
  Transmission Date: 20150720
  Serious: Yes (Hospitalization)
  Sender: FDA-Public Use
  Company Number: IT-009507513-1412ITA002749

PATIENT
  Age: 62 Year
  Sex: Female
  Weight: 53.5 kg

DRUGS (14)
  1. LEVOTHYROXINE SODIUM. [Concomitant]
     Active Substance: LEVOTHYROXINE SODIUM
     Indication: HYPOTHYROIDISM
     Dosage: 125 MICROGRAM,FREQUENCY:OTHER
     Route: 048
     Dates: start: 20140925
  2. PEMBROLIZUMAB. [Suspect]
     Active Substance: PEMBROLIZUMAB
     Indication: NEOPLASM
     Dosage: 10 MG/KG, QOW
     Route: 042
     Dates: start: 20140422, end: 20141106
  3. PEMBROLIZUMAB. [Suspect]
     Active Substance: PEMBROLIZUMAB
     Dosage: 10 MG/KG, QOW
     Route: 042
     Dates: start: 20141211, end: 20141211
  4. OXYCODONE [Concomitant]
     Active Substance: OXYCODONE
     Indication: METASTATIC PAIN
     Dosage: 2.5 MG, BID
     Route: 048
     Dates: start: 201402
  5. MORPHINE [Concomitant]
     Active Substance: MORPHINE
     Indication: METASTATIC PAIN
     Dosage: TOTAL DAILY DOSE 10 MG, PRN
     Route: 048
     Dates: start: 201402
  6. PLASIL [Concomitant]
     Active Substance: METOCLOPRAMIDE HYDROCHLORIDE
     Indication: NAUSEA
     Dosage: TOTAL DAILY DOSE: 1 TABLET, PRN
     Route: 048
     Dates: start: 20140911
  7. PEMBROLIZUMAB. [Suspect]
     Active Substance: PEMBROLIZUMAB
     Dosage: 10 MG/KG, QOW
     Route: 042
     Dates: start: 20141120, end: 20141120
  8. FLUIMUCIL [Concomitant]
     Active Substance: ACETYLCYSTEINE
     Indication: BRONCHITIS
     Dosage: 200 MG, QD
     Route: 048
     Dates: start: 20140717
  9. LEVOTHYROXINE SODIUM. [Concomitant]
     Active Substance: LEVOTHYROXINE SODIUM
     Indication: HYPOTHYROIDISM
     Dosage: 100 MICROGRAM, FREQUENCY:OTHER
     Route: 048
     Dates: start: 20140925
  10. LANSOPRAZOLE. [Concomitant]
     Active Substance: LANSOPRAZOLE
     Indication: PROPHYLAXIS AGAINST GASTROINTESTINAL ULCER
     Dosage: TOTAL DAILY DOSE 30 MG, QD
     Route: 048
     Dates: start: 201402
  11. LEVOFLOXACIN. [Concomitant]
     Active Substance: LEVOFLOXACIN
     Indication: BRONCHITIS
     Dosage: 500 MG, QD
     Route: 048
     Dates: start: 20140717
  12. SUCRALFATE. [Concomitant]
     Active Substance: SUCRALFATE
     Indication: NAUSEA
     Dosage: TOTAL DAILY DOSE:1 PACKET, PRN
     Route: 048
     Dates: start: 20140911
  13. BISOPROLOL [Concomitant]
     Active Substance: BISOPROLOL
     Indication: HYPERTENSION
     Dosage: 1.25 MG, QD
     Route: 048
     Dates: start: 201310
  14. ACETAMINOPHEN. [Concomitant]
     Active Substance: ACETAMINOPHEN
     Indication: MYALGIA
     Dosage: TOTAL DAILY DOSE: 500 MG, PRN
     Route: 048
     Dates: start: 20141116

REACTIONS (1)
  - Influenza like illness [Recovered/Resolved]

NARRATIVE: CASE EVENT DATE: 20141121
